FAERS Safety Report 20769392 (Version 1)
Quarter: 2022Q2

REPORT INFORMATION
  Report Type: Report from Study
  Country: US (occurrence: US)
  Receive Date: 20220429
  Receipt Date: 20220429
  Transmission Date: 20220721
  Serious: Yes (Death, Hospitalization)
  Sender: FDA-Public Use
  Company Number: US-MYLANLABS-2022M1031273

PATIENT
  Age: 43 Year
  Sex: Male

DRUGS (1)
  1. PHENYTOIN [Suspect]
     Active Substance: PHENYTOIN
     Indication: Drug therapy
     Dosage: UNK
     Route: 042

REACTIONS (4)
  - Drug-induced liver injury [Fatal]
  - Coagulopathy [Unknown]
  - Acute kidney injury [Unknown]
  - Acute hepatic failure [Unknown]
